FAERS Safety Report 17936131 (Version 2)
Quarter: 2020Q3

REPORT INFORMATION
  Report Type: Spontaneous
  Country: PT (occurrence: PT)
  Receive Date: 20200624
  Receipt Date: 20200703
  Transmission Date: 20201103
  Serious: Yes (Other)
  Sender: FDA-Public Use
  Company Number: PT-ALIMERA SCIENCES INC.-PT-A16013-20-000108

PATIENT

DRUGS (1)
  1. ILUVIEN [Suspect]
     Active Substance: FLUOCINOLONE ACETONIDE
     Indication: CHORIORETINITIS
     Dosage: 0.25 ??G, QD ? LEFT EYE
     Route: 031
     Dates: start: 20200306

REACTIONS (8)
  - Device dislocation [Recovered/Resolved]
  - Vitrectomy [Recovered/Resolved]
  - Eye operation [Recovered/Resolved]
  - Eye inflammation [Unknown]
  - Drug ineffective [Unknown]
  - Exposure during pregnancy [Unknown]
  - Corneal decompensation [Unknown]
  - Blindness [Recovered/Resolved]

NARRATIVE: CASE EVENT DATE: 20200318
